FAERS Safety Report 9853865 (Version 1)
Quarter: 2014Q1

REPORT INFORMATION
  Report Type: Report from Study
  Country: JP (occurrence: JP)
  Receive Date: 20140129
  Receipt Date: 20140129
  Transmission Date: 20141002
  Serious: Yes (Other)
  Sender: FDA-Public Use
  Company Number: JP-TAKEDA-2014TJP000881

PATIENT
  Age: 73 Year
  Sex: Female
  Weight: 64 kg

DRUGS (13)
  1. ALOGLIPTIN [Suspect]
     Indication: TYPE 2 DIABETES MELLITUS
     Dosage: 6.25 MG, QD
     Route: 048
     Dates: start: 20111108, end: 20120305
  2. AMARYL [Concomitant]
     Indication: TYPE 2 DIABETES MELLITUS
     Dosage: 1 MG, 1 DAYS
     Route: 048
  3. NICHISTATE [Concomitant]
     Dosage: UNK
     Route: 048
  4. ADALAT CR [Concomitant]
     Dosage: UNK
     Route: 048
  5. AVAPRO [Concomitant]
     Dosage: UNK
     Route: 048
  6. MAINTATE [Concomitant]
     Dosage: UNK
     Route: 048
  7. CARDENALIN [Concomitant]
     Dosage: UNK
     Route: 048
  8. LIPITOR [Concomitant]
     Dosage: UNK
     Route: 048
  9. BAYASPIRIN [Concomitant]
     Dosage: UNK
     Route: 048
  10. NATRIX [Concomitant]
     Dosage: UNK
     Route: 048
  11. PAXIL [Concomitant]
     Dosage: UNK
     Route: 048
  12. GOODMIN [Concomitant]
     Dosage: UNK
     Route: 048
  13. AIDEITO [Concomitant]
     Dosage: UNK
     Route: 048

REACTIONS (1)
  - Pancreatic carcinoma [Unknown]
